FAERS Safety Report 7536905-2 (Version None)
Quarter: 2011Q2

REPORT INFORMATION
  Report Type: 
  Country: None (occurrence: None)
  Receive Date: 20110609
  Receipt Date: 20110531
  Transmission Date: 20111010
  Serious: Yes (Life-Threatening, Hospitalization)
  Sender: FDA-Public Use
  Company Number: US-BAXTER-2011BH010608

PATIENT
  Age: 78 Year
  Sex: Male
  Weight: 68 kg

DRUGS (8)
  1. DIGOXIN [Concomitant]
     Indication: CARDIAC FAILURE
     Route: 048
  2. NEPHRO-VITE RX [Concomitant]
     Indication: VITAMIN SUPPLEMENTATION
     Route: 048
  3. GABAPENTIN [Concomitant]
     Indication: CONVULSION
     Route: 048
  4. TEMAZEPAM [Suspect]
     Indication: PRODUCT USED FOR UNKNOWN INDICATION
     Route: 048
  5. RENAGEL [Concomitant]
     Indication: ELECTROLYTE IMBALANCE
     Route: 048
  6. ASPIRIN [Concomitant]
     Indication: ANTIPLATELET THERAPY
     Route: 048
  7. DIANEAL [Suspect]
     Indication: PERITONEAL DIALYSIS
     Route: 033
     Dates: start: 20110406, end: 20110407
  8. ATORVASTATIN [Concomitant]
     Indication: BLOOD CHOLESTEROL
     Route: 048

REACTIONS (2)
  - CHEST PAIN [None]
  - BLOOD PRESSURE INCREASED [None]
